FAERS Safety Report 5270233-3 (Version None)
Quarter: 2007Q1

REPORT INFORMATION
  Report Type: 
  Country: None (occurrence: None)
  Receive Date: 20070320
  Receipt Date: 20070315
  Transmission Date: 20070707
  Serious: Yes (Death, Other)
  Sender: FDA-Public Use
  Company Number: HQWYE204205JAN06

PATIENT
  Sex: Female
  Weight: 68 kg

DRUGS (5)
  1. GEMTUZUMAB OZOGAMICIN [Suspect]
     Indication: MYELODYSPLASTIC SYNDROME
     Dosage: 5MG/M2 FOR ONE DAY ON DAY 7
     Route: 065
     Dates: start: 20051202, end: 20051202
  2. COMOX [Concomitant]
     Dosage: DATES OF THERAPY AND FREQUENCYT WERE NOT PROVIDED
     Route: 065
  3. COLISTIN [Concomitant]
     Dosage: ^PREMEDICATION^, DATES AND DOSE OF THERAPY WERE NOT PROVIDED
     Route: 065
  4. IDARUBICIN HCL [Suspect]
     Dosage: 12 MG/M2/DAY ON DAYS 1,3,5
     Route: 065
     Dates: start: 20051126, end: 20051130
  5. CYTARABINE [Suspect]
     Dosage: 100MG/M2/DAY FOR 10 DAY  (DAYS 1-10)
     Route: 065
     Dates: start: 20051126, end: 20051205

REACTIONS (3)
  - INFECTION [None]
  - MULTI-ORGAN FAILURE [None]
  - RESPIRATORY FAILURE [None]
